FAERS Safety Report 9254934 (Version 1)
Quarter: 2013Q2

REPORT INFORMATION
  Report Type: Spontaneous
  Country: US (occurrence: US)
  Receive Date: 20130425
  Receipt Date: 20130425
  Transmission Date: 20140414
  Serious: Yes (Hospitalization, Other)
  Sender: FDA-Public Use
  Company Number: US-JNJFOC-20130407380

PATIENT
  Age: 49 Year
  Sex: Female
  Weight: 52.16 kg

DRUGS (8)
  1. INVEGA SUSTENNA [Suspect]
     Indication: SCHIZOAFFECTIVE DISORDER BIPOLAR TYPE
     Route: 030
  2. INVEGA SUSTENNA [Suspect]
     Indication: SCHIZOAFFECTIVE DISORDER BIPOLAR TYPE
     Route: 030
  3. INVEGA SUSTENNA [Suspect]
     Indication: SCHIZOAFFECTIVE DISORDER BIPOLAR TYPE
     Route: 030
  4. INVEGA SUSTENNA [Suspect]
     Indication: SCHIZOAFFECTIVE DISORDER BIPOLAR TYPE
     Route: 030
     Dates: start: 2012
  5. RISPERDAL [Suspect]
     Indication: SCHIZOAFFECTIVE DISORDER BIPOLAR TYPE
     Route: 065
     Dates: start: 2013, end: 2013
  6. COGENTIN [Concomitant]
     Route: 065
  7. LAMICTAL [Concomitant]
     Route: 065
  8. ATIVAN [Concomitant]
     Route: 065

REACTIONS (3)
  - Drug dose omission [Unknown]
  - Schizoaffective disorder [Not Recovered/Not Resolved]
  - Incorrect dose administered [Unknown]
